FAERS Safety Report 7349180-9 (Version None)
Quarter: 2011Q1

REPORT INFORMATION
  Report Type: 
  Country: None (occurrence: None)
  Receive Date: 20110314
  Receipt Date: 20110311
  Transmission Date: 20110831
  Serious: Yes (Death)
  Sender: FDA-Public Use
  Company Number: DE-SANOFI-AVENTIS-2011SA014770

PATIENT
  Age: 74 Year
  Sex: Male

DRUGS (8)
  1. CETUXIMAB [Suspect]
     Route: 041
     Dates: start: 20110223, end: 20110223
  2. PANTOZOL [Concomitant]
     Route: 048
  3. FUROSEMIDE [Concomitant]
     Route: 048
  4. FOLINIC ACID [Suspect]
     Route: 041
     Dates: start: 20110223, end: 20110223
  5. 1-ALPHA-HYDROXYCHOLECALCIFEROL [Concomitant]
     Route: 048
  6. OXALIPLATIN [Suspect]
     Route: 041
     Dates: start: 20110223, end: 20110223
  7. 5-FU [Suspect]
     Route: 041
     Dates: start: 20110223, end: 20110223
  8. METOPROLOL SUCCINATE [Concomitant]
     Route: 048

REACTIONS (1)
  - DEATH [None]
